FAERS Safety Report 9127255 (Version 1)
Quarter: 2013Q1

REPORT INFORMATION
  Report Type: Spontaneous
  Country: US (occurrence: US)
  Receive Date: 20130228
  Receipt Date: 20130228
  Transmission Date: 20140127
  Serious: No
  Sender: FDA-Public Use
  Company Number: US-GLAXOSMITHKLINE-A0964202A

PATIENT
  Age: 32 Year
  Sex: Female
  Weight: 127.3 kg

DRUGS (4)
  1. LAMOTRIGINE [Suspect]
     Indication: DEPRESSION
     Dosage: 12.5MG PER DAY
     Route: 048
     Dates: start: 201111
  2. VISTARIL [Concomitant]
     Indication: DEPRESSION
  3. INJECTION [Concomitant]
  4. LOVENOX [Concomitant]
     Indication: HYPERCOAGULATION
     Dosage: 60MG PER DAY
     Dates: start: 201202

REACTIONS (3)
  - Gastrooesophageal reflux disease [Not Recovered/Not Resolved]
  - Fungal infection [Unknown]
  - Exposure during pregnancy [Unknown]
